FAERS Safety Report 12828826 (Version 1)
Quarter: 2016Q4

REPORT INFORMATION
  Report Type: Spontaneous
  Country: US (occurrence: US)
  Receive Date: 20161007
  Receipt Date: 20161007
  Transmission Date: 20170207
  Serious: No
  Sender: FDA-Public Use
  Company Number: US-SA-2015SA165080

PATIENT
  Age: 63 Year
  Sex: Female
  Weight: 66.22 kg

DRUGS (23)
  1. AMITRIPTYLINE HYDROCHLORIDE. [Concomitant]
     Active Substance: AMITRIPTYLINE HYDROCHLORIDE
  2. CLARITIN [Concomitant]
     Active Substance: LORATADINE
  3. VITAMIN C [Concomitant]
     Active Substance: ASCORBIC ACID
  4. AUBAGIO [Suspect]
     Active Substance: TERIFLUNOMIDE
     Indication: MULTIPLE SCLEROSIS
     Route: 048
     Dates: start: 20150914
  5. ZINC [Concomitant]
     Active Substance: ZINC\ZINC CHLORIDE
  6. FISH OIL [Concomitant]
     Active Substance: FISH OIL
  7. L-THYROXINE [Concomitant]
     Active Substance: LEVOTHYROXINE
     Indication: THYROID DISORDER
  8. NORVASC [Concomitant]
     Active Substance: AMLODIPINE BESYLATE
  9. TAGAMET [Concomitant]
     Active Substance: CIMETIDINE
  10. CHONDROITIN SULFATE/GLUCOSAMINE HYDROCHLORIDE [Concomitant]
  11. SOMINEX /USA/ [Concomitant]
  12. VITAMIN D [Concomitant]
     Active Substance: CHOLECALCIFEROL
  13. BACLOFEN. [Concomitant]
     Active Substance: BACLOFEN
  14. KETOPROFEN. [Concomitant]
     Active Substance: KETOPROFEN
  15. TYLENOL [Concomitant]
     Active Substance: ACETAMINOPHEN
  16. BENADRYL [Concomitant]
     Active Substance: DIPHENHYDRAMINE HYDROCHLORIDE
  17. PEPCID [Concomitant]
     Active Substance: FAMOTIDINE
  18. CALCIUM [Concomitant]
     Active Substance: CALCIUM
  19. ALEVE [Concomitant]
     Active Substance: NAPROXEN SODIUM
  20. OMEPRAZOLE. [Concomitant]
     Active Substance: OMEPRAZOLE
  21. ZANTAC [Concomitant]
     Active Substance: RANITIDINE HYDROCHLORIDE
  22. VITAMIN B12 [Concomitant]
     Active Substance: CYANOCOBALAMIN
  23. ADVIL [Concomitant]
     Active Substance: IBUPROFEN

REACTIONS (1)
  - Pruritus [Recovered/Resolved]

NARRATIVE: CASE EVENT DATE: 20150916
